FAERS Safety Report 4880333-5 (Version None)
Quarter: 2006Q1

REPORT INFORMATION
  Report Type: 
  Country: None (occurrence: None)
  Receive Date: 20060111
  Receipt Date: 20060111
  Transmission Date: 20060701
  Serious: Yes (Congenital Anomaly)
  Sender: FDA-Public Use
  Company Number: None

PATIENT
  Age: 29 Year
  Sex: Female
  Weight: 52.1637 kg

DRUGS (2)
  1. TORADOL [Suspect]
     Indication: PAIN
     Dosage: ONE TABLET   4-6 HOURS  PO
     Route: 048
     Dates: start: 19940706, end: 19940715
  2. HYDROCODONE + ACETAMINOPHEN     ?      WATSON [Suspect]
     Indication: PAIN
     Dosage: ONE TABLET    4-6 HOURS   PO
     Route: 048
     Dates: start: 19940705, end: 19940715

REACTIONS (7)
  - DRUG EXPOSURE DURING PREGNANCY [None]
  - HYPOTONIA NEONATAL [None]
  - MENTAL RETARDATION SEVERITY UNSPECIFIED [None]
  - NEONATAL DISORDER [None]
  - PREGNANCY [None]
  - ROAD TRAFFIC ACCIDENT [None]
  - TEMPERATURE INTOLERANCE [None]
